FAERS Safety Report 6905027-3 (Version None)
Quarter: 2010Q3

REPORT INFORMATION
  Report Type: 
  Country: None (occurrence: None)
  Receive Date: 20100804
  Receipt Date: 20090831
  Transmission Date: 20110219
  Serious: No
  Sender: FDA-Public Use
  Company Number: US-PFIZER INC-2009240278

PATIENT
  Sex: Female

DRUGS (2)
  1. LYRICA [Suspect]
  2. NOVOLOG [Suspect]

REACTIONS (2)
  - HYPERSENSITIVITY [None]
  - PAIN [None]
